FAERS Safety Report 5497754-2 (Version None)
Quarter: 2007Q4

REPORT INFORMATION
  Report Type: 
  Country: None (occurrence: None)
  Receive Date: 20071025
  Receipt Date: 20070220
  Transmission Date: 20080405
  Serious: No
  Sender: FDA-Public Use
  Company Number: A0640274A

PATIENT
  Age: 73 Year
  Sex: Male

DRUGS (8)
  1. ADVAIR DISKUS 100/50 [Suspect]
     Indication: ASTHMA
     Dosage: 1PUFF PER DAY
     Route: 055
     Dates: start: 20060212
  2. SPIRIVA [Suspect]
     Indication: DRUG USE FOR UNKNOWN INDICATION
     Route: 065
  3. AVANDIA [Concomitant]
  4. DOXAZOSIN MESYLATE [Concomitant]
  5. CLOPIDOGREL [Concomitant]
  6. ZOLOFT [Concomitant]
  7. OXYGEN [Concomitant]
  8. UNKNOWN MEDICATION [Concomitant]

REACTIONS (2)
  - CHEST PAIN [None]
  - DRY THROAT [None]
